FAERS Safety Report 8481586-7 (Version None)
Quarter: 2012Q3

REPORT INFORMATION
  Report Type: 
  Country: None (occurrence: None)
  Receive Date: 20120702
  Receipt Date: 20120626
  Transmission Date: 20120928
  Serious: Yes (Other)
  Sender: FDA-Public Use
  Company Number: US-AMGEN-USASP2012039577

PATIENT
  Age: 71 Year
  Sex: Female

DRUGS (2)
  1. METHOTREXATE [Concomitant]
     Dosage: UNK
  2. ENBREL [Suspect]
     Indication: RHEUMATOID ARTHRITIS
     Dosage: 50 MG, QWK
     Dates: start: 20110727

REACTIONS (7)
  - JOINT INJURY [None]
  - LIMB INJURY [None]
  - FOOT FRACTURE [None]
  - WALKING AID USER [None]
  - FALL [None]
  - SKIN DISCOLOURATION [None]
  - PAIN [None]
